FAERS Safety Report 5759845-8 (Version None)
Quarter: 2008Q2

REPORT INFORMATION
  Report Type: 
  Country: None (occurrence: None)
  Receive Date: 20080605
  Receipt Date: 20080526
  Transmission Date: 20081010
  Serious: Yes (Other)
  Sender: FDA-Public Use
  Company Number: PHRM2008FR01258

PATIENT
  Sex: Female

DRUGS (2)
  1. FEMARA [Suspect]
     Indication: BREAST CANCER
     Dosage: UNK, UNK
     Route: 048
     Dates: start: 20061106
  2. FEMARA [Suspect]
     Route: 048
     Dates: end: 20071120

REACTIONS (4)
  - COMPRESSION STOCKINGS APPLICATION [None]
  - INFLAMMATION [None]
  - PAIN OF SKIN [None]
  - PERIPHLEBITIS [None]
